FAERS Safety Report 21902654 (Version 1)
Quarter: 2023Q1

REPORT INFORMATION
  Report Type: Report from Study
  Country: US (occurrence: US)
  Receive Date: 20230124
  Receipt Date: 20230124
  Transmission Date: 20230417
  Serious: Yes (Other)
  Sender: FDA-Public Use
  Company Number: US-JNJFOC-20230145239

PATIENT
  Age: 56 Year
  Sex: Female

DRUGS (2)
  1. SPRAVATO [Suspect]
     Active Substance: ESKETAMINE
     Indication: Depression
     Dosage: :56 MG, 2 TOTAL DOSES^
     Dates: start: 20220524, end: 20220526
  2. SPRAVATO [Suspect]
     Active Substance: ESKETAMINE
     Dosage: :84 MG, 16 TOTAL DOSES^
     Dates: start: 20220531, end: 20230116

REACTIONS (1)
  - Surgery [Unknown]
